FAERS Safety Report 8258244-7 (Version None)
Quarter: 2012Q2

REPORT INFORMATION
  Report Type: 
  Country: None (occurrence: None)
  Receive Date: 20120404
  Receipt Date: 20120403
  Transmission Date: 20120825
  Serious: Yes (Other)
  Sender: FDA-Public Use
  Company Number: PHHY2012IT007110

PATIENT
  Sex: Female

DRUGS (4)
  1. ZOMETA [Suspect]
     Dosage: 4 MG, QMO
     Route: 042
     Dates: start: 20110614, end: 20110614
  2. ZOMETA [Suspect]
     Indication: METASTASES TO BONE
     Dosage: 4 MG, QMO
     Route: 042
     Dates: start: 20100728
  3. CAPECITABINE [Concomitant]
  4. TAXOL [Concomitant]

REACTIONS (3)
  - TOOTH ABSCESS [None]
  - OSTEONECROSIS OF JAW [None]
  - BONE FISTULA [None]
